FAERS Safety Report 23937511 (Version 1)
Quarter: 2024Q2

REPORT INFORMATION
  Report Type: Spontaneous
  Country: SK (occurrence: SK)
  Receive Date: 20240604
  Receipt Date: 20240604
  Transmission Date: 20240716
  Serious: Yes (Other)
  Sender: FDA-Public Use
  Company Number: SK-002147023-NVSC2024SK114671

PATIENT
  Sex: Male

DRUGS (3)
  1. IMATINIB [Suspect]
     Active Substance: IMATINIB
     Indication: Chronic myeloid leukaemia
     Dosage: 400 MG, QD
     Route: 065
     Dates: start: 200504, end: 200605
  2. IMATINIB [Suspect]
     Active Substance: IMATINIB
     Dosage: 600 MG, QD
     Route: 065
     Dates: start: 200606, end: 200706
  3. IMATINIB [Suspect]
     Active Substance: IMATINIB
     Dosage: 800 MG, QD (2X 400 MG)
     Route: 065
     Dates: start: 200707, end: 200810

REACTIONS (8)
  - Chronic myeloid leukaemia recurrent [Recovering/Resolving]
  - Toxicity to various agents [Unknown]
  - Fluid retention [Recovering/Resolving]
  - Generalised oedema [Recovering/Resolving]
  - Eyelid oedema [Recovering/Resolving]
  - Weight increased [Recovering/Resolving]
  - Therapeutic response decreased [Unknown]
  - Treatment failure [Unknown]

NARRATIVE: CASE EVENT DATE: 20060401
